FAERS Safety Report 8315666-3 (Version None)
Quarter: 2012Q2

REPORT INFORMATION
  Report Type: 
  Country: None (occurrence: None)
  Receive Date: 20120426
  Receipt Date: 20120411
  Transmission Date: 20120825
  Serious: Yes (Hospitalization)
  Sender: FDA-Public Use
  Company Number: GB-WATSON-2012-06953

PATIENT
  Age: 76 Year
  Sex: Female
  Weight: 55 kg

DRUGS (8)
  1. RAMIPRIL [Suspect]
     Indication: PRODUCT USED FOR UNKNOWN INDICATION
     Dosage: 2.5 MG, DAILY. IN THE MORNING
     Route: 048
     Dates: end: 20120305
  2. ASPIRIN [Concomitant]
     Indication: PRODUCT USED FOR UNKNOWN INDICATION
     Dosage: 75 MG, DAILY
     Route: 048
     Dates: end: 20120305
  3. LANSOPRAZOLE [Concomitant]
     Indication: PRODUCT USED FOR UNKNOWN INDICATION
     Dosage: 15 MG, DAILY
     Route: 048
     Dates: end: 20120305
  4. FLUTICASONE PROPIONATE/SALMETEROL [Concomitant]
     Indication: PRODUCT USED FOR UNKNOWN INDICATION
     Dosage: 1 DF, DAILY. 500MCG/ 50MCG STR. ONE PUFF TWICE DAILY. ONGOING.
     Route: 055
  5. SIMVASTATIN [Suspect]
     Indication: PRODUCT USED FOR UNKNOWN INDICATION
     Dosage: 20 MG, DAILY. AT NIGHT
     Route: 048
     Dates: end: 20120305
  6. CIPROFLOXACIN HCL [Suspect]
     Indication: LIVER ABSCESS
     Dosage: 750 MG, BID
     Route: 048
     Dates: start: 20120216, end: 20120305
  7. FUROSEMIDE [Concomitant]
     Indication: PRODUCT USED FOR UNKNOWN INDICATION
     Dosage: 20 MG, DAILY. IN THE MORNING.
     Route: 048
     Dates: end: 20120305
  8. SPIRIVA [Concomitant]
     Indication: PRODUCT USED FOR UNKNOWN INDICATION
     Dosage: 18 MCG, DAILY. ONGOING
     Route: 055

REACTIONS (2)
  - DEHYDRATION [None]
  - RENAL FAILURE ACUTE [None]
